FAERS Safety Report 10378863 (Version 1)
Quarter: 2014Q3

REPORT INFORMATION
  Report Type: Report from Study
  Country: US (occurrence: US)
  Receive Date: 20140812
  Receipt Date: 20140812
  Transmission Date: 20150326
  Serious: Yes (Other)
  Sender: FDA-Public Use
  Company Number: US-BAXTER-2014BAX046937

PATIENT
  Sex: Female

DRUGS (2)
  1. GAMMAGARD LIQUID [Suspect]
     Active Substance: HUMAN IMMUNOGLOBULIN G
     Route: 058
     Dates: start: 201405
  2. GAMMAGARD LIQUID [Suspect]
     Active Substance: HUMAN IMMUNOGLOBULIN G
     Indication: PRODUCT USED FOR UNKNOWN INDICATION
     Route: 042

REACTIONS (8)
  - Alopecia [Recovered/Resolved]
  - Hallucination [Recovered/Resolved]
  - Bronchitis [Recovered/Resolved]
  - Pneumonia [Recovered/Resolved]
  - Disorientation [Recovered/Resolved]
  - Suicidal ideation [Recovered/Resolved]
  - Abnormal loss of weight [Recovered/Resolved]
  - Malaise [Recovered/Resolved]
